FAERS Safety Report 13630471 (Version 1)
Quarter: 2017Q2

REPORT INFORMATION
  Report Type: Spontaneous
  Country: US (occurrence: US)
  Receive Date: 20170531
  Receipt Date: 20170531
  Transmission Date: 20170830
  Serious: No
  Sender: FDA-Public Use
  Company Number: US-ASTELLAS-1305342

PATIENT
  Sex: Female

DRUGS (7)
  1. ASPIRIN. [Concomitant]
     Active Substance: ASPIRIN
  2. PROLIA [Concomitant]
     Active Substance: DENOSUMAB
  3. MINOCYCLINE [Concomitant]
     Active Substance: MINOCYCLINE\MINOCYCLINE HYDROCHLORIDE
  4. TARCEVA [Suspect]
     Active Substance: ERLOTINIB HYDROCHLORIDE
     Indication: BLOOD OSMOLARITY DECREASED
     Route: 048
     Dates: start: 20140708
  5. TARCEVA [Suspect]
     Active Substance: ERLOTINIB HYDROCHLORIDE
     Indication: LUNG NEOPLASM MALIGNANT
     Route: 048
     Dates: start: 20130724
  6. ALBUTEROL. [Concomitant]
     Active Substance: ALBUTEROL
  7. TARCEVA [Suspect]
     Active Substance: ERLOTINIB HYDROCHLORIDE
     Indication: HYPONATRAEMIA

REACTIONS (7)
  - Rash [Unknown]
  - Dry skin [Unknown]
  - Ocular hyperaemia [Unknown]
  - Nasal dryness [Unknown]
  - Diarrhoea [Unknown]
  - Erythema of eyelid [Unknown]
  - Eye pain [Unknown]
